FAERS Safety Report 12919605 (Version 3)
Quarter: 2017Q1

REPORT INFORMATION
  Report Type: Spontaneous
  Country: PT (occurrence: PT)
  Receive Date: 20161108
  Receipt Date: 20170315
  Transmission Date: 20170428
  Serious: Yes (Other)
  Sender: FDA-Public Use
  Company Number: PT-ROCHE-1848829

PATIENT
  Age: 37 Year
  Sex: Female
  Weight: 61 kg

DRUGS (7)
  1. PERJETA [Suspect]
     Active Substance: PERTUZUMAB
     Indication: INVASIVE BREAST CARCINOMA
     Route: 042
     Dates: start: 20150601, end: 20150601
  2. DOCETAXEL. [Suspect]
     Active Substance: DOCETAXEL
     Indication: INVASIVE BREAST CARCINOMA
     Route: 042
     Dates: start: 20150601, end: 20150914
  3. HERCEPTIN [Suspect]
     Active Substance: TRASTUZUMAB
     Route: 042
     Dates: start: 20150622
  4. HERCEPTIN [Suspect]
     Active Substance: TRASTUZUMAB
     Indication: INVASIVE BREAST CARCINOMA
     Route: 042
     Dates: start: 20150601, end: 20150601
  5. ZOLEDRONIC ACID [Suspect]
     Active Substance: ZOLEDRONIC ACID
     Indication: INVASIVE BREAST CARCINOMA
     Route: 042
     Dates: start: 20150622, end: 20150914
  6. TAMOXIFEN [Concomitant]
     Active Substance: TAMOXIFEN
     Route: 065
     Dates: start: 20151005
  7. PERJETA [Suspect]
     Active Substance: PERTUZUMAB
     Route: 042
     Dates: start: 20150622

REACTIONS (5)
  - Arthralgia [Recovered/Resolved]
  - Blood oestrogen increased [Not Recovered/Not Resolved]
  - Myalgia [Recovered/Resolved]
  - Vertebral lesion [Not Recovered/Not Resolved]
  - Bone lesion [Not Recovered/Not Resolved]

NARRATIVE: CASE EVENT DATE: 20150703
